FAERS Safety Report 14987131 (Version 2)
Quarter: 2018Q3

REPORT INFORMATION
  Report Type: Spontaneous
  Country: CA (occurrence: CA)
  Receive Date: 20180608
  Receipt Date: 20180731
  Transmission Date: 20181010
  Serious: Yes (Other)
  Sender: FDA-Public Use
  Company Number: CA-CONCORDIA PHARMACEUTICALS INC.-GSH201806-001968

PATIENT
  Age: 66 Year
  Sex: Female

DRUGS (6)
  1. METHOTREXATE. [Suspect]
     Active Substance: METHOTREXATE
     Route: 048
  2. ENBREL [Suspect]
     Active Substance: ETANERCEPT
     Dates: start: 2013
  3. ARAVA [Suspect]
     Active Substance: LEFLUNOMIDE
     Route: 065
  4. HYDROXYCHLOROQUINE [Suspect]
     Active Substance: HYDROXYCHLOROQUINE
     Route: 065
  5. ENBREL [Suspect]
     Active Substance: ETANERCEPT
     Indication: RHEUMATOID ARTHRITIS
     Route: 065
     Dates: start: 20070603
  6. METHOTREXATE. [Suspect]
     Active Substance: METHOTREXATE
     Route: 051

REACTIONS (4)
  - Blood creatine phosphokinase increased [Unknown]
  - Drug effect incomplete [Unknown]
  - Rheumatoid arthritis [Unknown]
  - Drug intolerance [Unknown]

NARRATIVE: CASE EVENT DATE: 201802
